FAERS Safety Report 6244116-6 (Version None)
Quarter: 2009Q2

REPORT INFORMATION
  Report Type: 
  Country: None (occurrence: None)
  Receive Date: 20090625
  Receipt Date: 20090611
  Transmission Date: 20091009
  Serious: Yes (Other)
  Sender: FDA-Public Use
  Company Number: GB-RANBAXY-2009RR-24969

PATIENT
  Age: 44 Year
  Sex: Female
  Weight: 70 kg

DRUGS (3)
  1. CIPROFLOXACIN [Suspect]
     Indication: URINARY TRACT INFECTION
     Dosage: 500 MG, UNK
     Route: 048
     Dates: start: 20090514, end: 20090520
  2. DICLOFENAC [Concomitant]
     Indication: URINARY TRACT INFECTION
     Dosage: 50 MG, UNK
     Route: 048
     Dates: start: 20090508
  3. NOVOMIX [Concomitant]
     Indication: DIABETES MELLITUS
     Dosage: UNK
     Dates: start: 20051013

REACTIONS (3)
  - FACIAL PAIN [None]
  - NEUROLOGICAL SYMPTOM [None]
  - PARAESTHESIA [None]
